FAERS Safety Report 20904686 (Version 1)
Quarter: 2022Q2

REPORT INFORMATION
  Report Type: Report from Study
  Country: ES (occurrence: ES)
  Receive Date: 20220602
  Receipt Date: 20220602
  Transmission Date: 20220721
  Serious: Yes (Hospitalization)
  Sender: FDA-Public Use
  Company Number: ES-TAKEDA-2022TUS036104

PATIENT
  Age: 12 Year
  Sex: Male

DRUGS (12)
  1. IDURSULFASE [Suspect]
     Active Substance: IDURSULFASE
     Indication: Mucopolysaccharidosis II
     Dosage: UNK UNK, 1/WEEK
     Route: 042
     Dates: start: 20130426
  2. IDURSULFASE [Suspect]
     Active Substance: IDURSULFASE
     Dosage: 0.43 MILLIGRAM/KILOGRAM, 1/WEEK
     Route: 042
     Dates: start: 201910
  3. METHYLPHENIDATE [Concomitant]
     Active Substance: METHYLPHENIDATE
     Indication: Disturbance in attention
     Dosage: UNK
     Route: 048
     Dates: start: 20151006, end: 20211123
  4. MELAMIL [Concomitant]
     Indication: Insomnia
     Dosage: UNK
     Route: 048
     Dates: start: 20151006
  5. RISPERIDONE [Concomitant]
     Active Substance: RISPERIDONE
     Indication: Behaviour disorder
     Dosage: UNK
     Route: 048
     Dates: start: 20160119, end: 20161115
  6. CLONIDINE [Concomitant]
     Active Substance: CLONIDINE
     Indication: Psychomotor hyperactivity
     Dosage: UNK
     Route: 048
     Dates: start: 20161115, end: 20170113
  7. MIRTAZAPINE [Concomitant]
     Active Substance: MIRTAZAPINE
     Indication: Behaviour disorder
     Dosage: UNK
     Route: 048
     Dates: start: 20170113
  8. ACETAMINOPHEN [Concomitant]
     Active Substance: ACETAMINOPHEN
     Indication: Pain
     Dosage: UNK
     Route: 048
     Dates: start: 20170713, end: 20170726
  9. ACETAMINOPHEN [Concomitant]
     Active Substance: ACETAMINOPHEN
     Indication: Gastroenteritis
     Dosage: UNK
     Route: 042
     Dates: start: 20180816, end: 20180816
  10. RANITIDINE [Concomitant]
     Active Substance: RANITIDINE
     Indication: Gastroenteritis
     Dosage: UNK
     Route: 042
     Dates: start: 20180816, end: 20180816
  11. GUANFACINE [Concomitant]
     Active Substance: GUANFACINE
     Indication: Psychomotor hyperactivity
     Dosage: UNK
     Route: 048
     Dates: start: 20180903
  12. TOPIRAMATE [Concomitant]
     Active Substance: TOPIRAMATE
     Dosage: UNK
     Route: 048
     Dates: start: 20201010, end: 20201101

REACTIONS (1)
  - Carpal tunnel decompression [Unknown]
